FAERS Safety Report 5945354-X (Version None)
Quarter: 2008Q4

REPORT INFORMATION
  Report Type: 
  Country: None (occurrence: None)
  Receive Date: 20081107
  Receipt Date: 20081031
  Transmission Date: 20090506
  Serious: Yes (Other)
  Sender: FDA-Public Use
  Company Number: US-PFIZER INC-2008043993

PATIENT
  Sex: Female
  Weight: 62.7 kg

DRUGS (8)
  1. LYRICA [Suspect]
     Indication: FIBROMYALGIA
     Route: 048
     Dates: start: 20080519
  2. LIPITOR [Concomitant]
  3. METOPROLOL TARTRATE [Concomitant]
  4. CYMBALTA [Concomitant]
  5. KLONOPIN [Concomitant]
  6. TRAZODONE HCL [Concomitant]
  7. ACETYLSALICYLIC ACID SRT [Concomitant]
  8. PERCOCET [Concomitant]

REACTIONS (12)
  - DIPLOPIA [None]
  - DISABILITY [None]
  - DISORIENTATION [None]
  - DIZZINESS [None]
  - DYSARTHRIA [None]
  - FATIGUE [None]
  - INSOMNIA [None]
  - MIDDLE INSOMNIA [None]
  - MUSCLE DISORDER [None]
  - SWELLING FACE [None]
  - TONGUE OEDEMA [None]
  - VISUAL ACUITY REDUCED [None]
